FAERS Safety Report 20848022 (Version 1)
Quarter: 2022Q2

REPORT INFORMATION
  Report Type: Spontaneous
  Country: ES (occurrence: ES)
  Receive Date: 20220519
  Receipt Date: 20220519
  Transmission Date: 20220720
  Serious: Yes (Other)
  Sender: FDA-Public Use
  Company Number: None

PATIENT
  Age: 76 Year
  Sex: Male

DRUGS (3)
  1. AZITHROMYCIN [Suspect]
     Active Substance: AZITHROMYCIN
     Indication: Pneumonia
     Dosage: UNIT DOSE 500MG,FREQUENCY TIME24 HOURS,DURATION 4 DAYS, (7019A)
     Route: 065
     Dates: start: 20211210, end: 20211213
  2. CEFDITOREN [Suspect]
     Active Substance: CEFDITOREN
     Indication: Urinary tract infection
     Dosage: UNIT DOSE 400 MG,FREQUENCY TIME 12 HOURS,DURATION 7 DAYS, (7358A)
     Route: 048
     Dates: start: 20211204, end: 20211210
  3. CEFTRIAXONE [Suspect]
     Active Substance: CEFTRIAXONE
     Indication: Pneumonia
     Dosage: UNIT DOSE 2G,FREQUENCY TIME 24 HOURS,DURATION 4 DAYS,  (501A)
     Route: 065
     Dates: start: 20211210, end: 20211213

REACTIONS (1)
  - Hepatitis cholestatic [Recovering/Resolving]

NARRATIVE: CASE EVENT DATE: 20211214
